FAERS Safety Report 7023100-9 (Version None)
Quarter: 2010Q3

REPORT INFORMATION
  Report Type: 
  Country: None (occurrence: None)
  Receive Date: 20100930
  Receipt Date: 20100920
  Transmission Date: 20110219
  Serious: Yes (Other)
  Sender: FDA-Public Use
  Company Number: PHHY2010BR32664

PATIENT
  Sex: Female

DRUGS (2)
  1. FORASEQ [Suspect]
  2. OMEPRAZOLE [Concomitant]

REACTIONS (7)
  - CORNEAL TRANSPLANT [None]
  - COUGH [None]
  - EYE HAEMORRHAGE [None]
  - NASAL OPERATION [None]
  - RETINAL DETACHMENT [None]
  - SKIN CANCER [None]
  - THROMBOSIS [None]
